FAERS Safety Report 9305955 (Version 1)
Quarter: 2013Q2

REPORT INFORMATION
  Report Type: Spontaneous
  Country: US (occurrence: US)
  Receive Date: 20130523
  Receipt Date: 20130523
  Transmission Date: 20140414
  Serious: No
  Sender: FDA-Public Use
  Company Number: US-TEVA-342020USA

PATIENT
  Sex: Female

DRUGS (1)
  1. PROGLYCEM SUSPENSION [Suspect]
     Indication: PANCREATIC ISLETS HYPERPLASIA
     Route: 048

REACTIONS (3)
  - Dysgeusia [Unknown]
  - Nausea [Unknown]
  - Vomiting [Unknown]
